FAERS Safety Report 7829750-1 (Version None)
Quarter: 2011Q4

REPORT INFORMATION
  Report Type: 
  Country: None (occurrence: None)
  Receive Date: 20111018
  Receipt Date: 20111004
  Transmission Date: 20120403
  Serious: Yes (Hospitalization)
  Sender: FDA-Public Use
  Company Number: 2009-0639

PATIENT
  Age: 11 Year
  Sex: Male
  Weight: 24.6 kg

DRUGS (1)
  1. INCRELEX [Suspect]
     Indication: BODY HEIGHT BELOW NORMAL
     Dosage: 240 UG/KG (120 UG/KG,2 IN 1 D),SUBCUTANEOUS
     Route: 058

REACTIONS (1)
  - NEPHROLITHIASIS [None]
